FAERS Safety Report 10608220 (Version 1)
Quarter: 2014Q4

REPORT INFORMATION
  Report Type: Spontaneous
  Country: DK (occurrence: FR)
  Receive Date: 20141125
  Receipt Date: 20141125
  Transmission Date: 20150529
  Serious: Yes (Hospitalization)
  Sender: FDA-Public Use
  Company Number: FR-FRI-1000072671

PATIENT
  Age: 65 Year
  Sex: Female

DRUGS (7)
  1. ESCITALOPRAM [Suspect]
     Active Substance: ESCITALOPRAM OXALATE
     Indication: PRODUCT USED FOR UNKNOWN INDICATION
     Route: 048
  2. KARDEGIC [Interacting]
     Active Substance: ASPIRIN LYSINE
     Indication: THROMBOANGIITIS OBLITERANS
     Dosage: 1 DF DOSAGE FORM
     Route: 048
  3. LANTUS [Concomitant]
     Active Substance: INSULIN GLARGINE
     Indication: THROMBOANGIITIS OBLITERANS
     Dosage: 40 IU IN EVENING
  4. ZOLPIDEM [Concomitant]
     Active Substance: ZOLPIDEM\ZOLPIDEM TARTRATE
     Indication: PRODUCT USED FOR UNKNOWN INDICATION
     Dosage: 10 MG IN EVENING
  5. ALPRAZOLAM. [Concomitant]
     Active Substance: ALPRAZOLAM
     Indication: PRODUCT USED FOR UNKNOWN INDICATION
     Dosage: 0.25 MG IN EVENING
  6. HUMALOG [Concomitant]
     Active Substance: INSULIN LISPRO
     Indication: THROMBOANGIITIS OBLITERANS
     Dosage: 16 IU IN MORNING, NOON AND EVENING
  7. CRESTOR [Concomitant]
     Active Substance: ROSUVASTATIN CALCIUM
     Indication: PRODUCT USED FOR UNKNOWN INDICATION
     Dosage: 5 MG IN EVENING

REACTIONS (4)
  - Gastrointestinal haemorrhage [Recovered/Resolved]
  - Haematoma [Unknown]
  - Drug interaction [Unknown]
  - Gastric ulcer [Recovering/Resolving]

NARRATIVE: CASE EVENT DATE: 201409
